FAERS Safety Report 8533707-5 (Version None)
Quarter: 2012Q3

REPORT INFORMATION
  Report Type: 
  Country: None (occurrence: None)
  Receive Date: 20120724
  Receipt Date: 20120713
  Transmission Date: 20120928
  Serious: Yes (Other)
  Sender: FDA-Public Use
  Company Number: JP-VERTEX PHARMACEUTICALS INC.-AE-2012-010606

PATIENT
  Age: 64 Year
  Sex: Male

DRUGS (6)
  1. PEGINTERFERON ALFA-2B [Concomitant]
     Indication: HEPATITIS C
     Route: 058
     Dates: start: 20120403, end: 20120605
  2. TELAVIC (TELAPREVIR) [Suspect]
     Indication: HEPATITIS C
     Route: 048
     Dates: start: 20120403, end: 20120605
  3. ANTIBATE [Concomitant]
     Route: 061
     Dates: start: 20120409, end: 20120502
  4. HIRUDOID SOFT [Concomitant]
     Route: 061
     Dates: start: 20120409, end: 20120502
  5. RIBAVIRIN [Concomitant]
     Indication: HEPATITIS C
     Route: 048
     Dates: start: 20120403, end: 20120605
  6. PREDNISOLONE [Concomitant]
     Route: 048
     Dates: start: 20120409, end: 20120502

REACTIONS (2)
  - MALAISE [None]
  - PLATELET COUNT DECREASED [None]
